FAERS Safety Report 19213260 (Version 4)
Quarter: 2021Q2

REPORT INFORMATION
  Report Type: Spontaneous
  Country: ES (occurrence: ES)
  Receive Date: 20210504
  Receipt Date: 20210601
  Transmission Date: 20210717
  Serious: Yes (Other)
  Sender: FDA-Public Use
  Company Number: ES-PFIZER INC-2021473400

PATIENT
  Age: 94 Year
  Sex: Female

DRUGS (23)
  1. DONEPEZIL HCL [Suspect]
     Active Substance: DONEPEZIL HYDROCHLORIDE
     Dosage: UNK
     Route: 065
  2. SPIRONOLACTONE. [Suspect]
     Active Substance: SPIRONOLACTONE
     Dosage: UNK
     Route: 065
  3. CINITAPRIDE. [Suspect]
     Active Substance: CINITAPRIDE
     Dosage: UNK
     Route: 065
  4. FUROSEMIDE. [Suspect]
     Active Substance: FUROSEMIDE
     Dosage: UNK
     Route: 065
  5. PARACETAMOL [Suspect]
     Active Substance: ACETAMINOPHEN
     Indication: BACK PAIN
     Dosage: UNK
     Route: 065
  6. CITALOPRAM [Concomitant]
     Active Substance: CITALOPRAM HYDROBROMIDE
     Indication: HEADACHE
     Dosage: UNK
     Route: 065
  7. CITALOPRAM [Concomitant]
     Active Substance: CITALOPRAM HYDROBROMIDE
     Indication: INSOMNIA
  8. TELMISARTAN. [Suspect]
     Active Substance: TELMISARTAN
     Dosage: UNK
     Route: 065
  9. METAMIZOLE [Suspect]
     Active Substance: METAMIZOLE
     Dosage: UNK
     Route: 065
  10. LACTITOL [Suspect]
     Active Substance: LACTITOL
     Dosage: UNK
     Route: 065
  11. DUROGESIC [Suspect]
     Active Substance: FENTANYL
     Dosage: 75UG EVERY 48 HOURS AT FIRST, THEN RANDOMLY ACCORDING TO SYMPTOMS
     Route: 062
  12. ATENOLOL. [Suspect]
     Active Substance: ATENOLOL
     Dosage: UNK
     Route: 065
  13. DUROGESIC [Suspect]
     Active Substance: FENTANYL
     Dosage: 25 UG
     Route: 062
  14. LEVODOPA [Suspect]
     Active Substance: LEVODOPA
     Indication: GAIT APRAXIA
     Dosage: UNK
     Route: 065
  15. ZOLPIDEM [Concomitant]
     Active Substance: ZOLPIDEM TARTRATE
     Indication: ANXIETY
     Dosage: UNK
     Route: 065
  16. ZOLPIDEM [Concomitant]
     Active Substance: ZOLPIDEM TARTRATE
     Indication: INSOMNIA
  17. ATORVASTATIN CALCIUM. [Suspect]
     Active Substance: ATORVASTATIN CALCIUM
     Dosage: UNK
     Route: 065
  18. PANTOPRAZOLE [Suspect]
     Active Substance: PANTOPRAZOLE
     Dosage: UNK
     Route: 065
  19. MANIDIPINE [Suspect]
     Active Substance: MANIDIPINE
     Dosage: UNK
     Route: 065
  20. ZOLPIDEM [Concomitant]
     Active Substance: ZOLPIDEM TARTRATE
     Indication: HEADACHE
  21. DUROGESIC [Suspect]
     Active Substance: FENTANYL
     Indication: BACK PAIN
     Dosage: 75UG/72 HOUR
     Route: 062
  22. BUPRENORPHINE TRANSDERMAL SYSTEM [Suspect]
     Active Substance: BUPRENORPHINE
     Indication: ANALGESIC THERAPY
     Dosage: INCREASING DOSES (UP TO 70 UG)
     Route: 062
  23. CITALOPRAM [Concomitant]
     Active Substance: CITALOPRAM HYDROBROMIDE
     Indication: ANXIETY

REACTIONS (13)
  - Drug dependence [Recovered/Resolved]
  - Myoclonus [Recovered/Resolved]
  - Renal failure [Recovered/Resolved]
  - Apathy [Recovered/Resolved]
  - Anxiety [Recovered/Resolved]
  - Restlessness [Recovered/Resolved]
  - Drug ineffective [Recovered/Resolved]
  - Somnolence [Recovered/Resolved]
  - Dehydration [Recovered/Resolved]
  - Yawning [Recovered/Resolved]
  - Myalgia [Recovered/Resolved]
  - Feeling cold [Recovered/Resolved]
  - Insomnia [Recovered/Resolved]
